FAERS Safety Report 6243304-2 (Version None)
Quarter: 2009Q2

REPORT INFORMATION
  Report Type: 
  Country: None (occurrence: None)
  Receive Date: 20090624
  Receipt Date: 20090615
  Transmission Date: 20091009
  Serious: Yes (Other)
  Sender: FDA-Public Use
  Company Number: PHEH2008US11471

PATIENT
  Sex: Female

DRUGS (1)
  1. RECLAST [Suspect]
     Dosage: UNK, UNK
     Dates: start: 20081107, end: 20081107

REACTIONS (7)
  - ANOREXIA [None]
  - DRUG INEFFECTIVE [None]
  - MALAISE [None]
  - PAIN IN EXTREMITY [None]
  - SPINAL DISORDER [None]
  - THERAPEUTIC RESPONSE UNEXPECTED [None]
  - WEIGHT DECREASED [None]
